FAERS Safety Report 18251910 (Version 4)
Quarter: 2020Q4

REPORT INFORMATION
  Report Type: Spontaneous
  Country: US (occurrence: US)
  Receive Date: 20200910
  Receipt Date: 20201005
  Transmission Date: 20210113
  Serious: No
  Sender: FDA-Public Use
  Company Number: NVSC2020US242662

PATIENT
  Sex: Male

DRUGS (1)
  1. CLINDAMYCIN PHOSPHATE. [Suspect]
     Active Substance: CLINDAMYCIN PHOSPHATE
     Indication: PRODUCT USED FOR UNKNOWN INDICATION
     Dosage: UNK, QD (LOTION)
     Route: 061

REACTIONS (4)
  - Burning sensation [Unknown]
  - Product physical consistency issue [Unknown]
  - Mucosal inflammation [Unknown]
  - Product container seal issue [Unknown]
